FAERS Safety Report 7642367-7 (Version None)
Quarter: 2011Q3

REPORT INFORMATION
  Report Type: 
  Country: None (occurrence: None)
  Receive Date: 20110722
  Receipt Date: 20110708
  Transmission Date: 20111222
  Serious: Yes (Other)
  Sender: FDA-Public Use
  Company Number: TCI2011A03950

PATIENT
  Age: 84 Year
  Sex: Male

DRUGS (4)
  1. ACTOS [Suspect]
     Indication: DIABETES MELLITUS
     Dosage: 15 MG (15 MG, 1 D), PER ORAL
     Route: 048
     Dates: end: 20110707
  2. ASPIRIN [Concomitant]
  3. TANATRIL (IMIDAPRIL HYDROCHLORIDE) [Concomitant]
  4. MICARDIS [Concomitant]

REACTIONS (2)
  - HAEMATURIA [None]
  - BLADDER CANCER [None]
